FAERS Safety Report 17902568 (Version 2)
Quarter: 2020Q3

REPORT INFORMATION
  Report Type: Spontaneous
  Country: JP (occurrence: JP)
  Receive Date: 20200616
  Receipt Date: 20200717
  Transmission Date: 20201103
  Serious: Yes (Hospitalization)
  Sender: FDA-Public Use
  Company Number: JP-ELI_LILLY_AND_COMPANY-JP202006002463

PATIENT
  Age: 71 Year
  Sex: Male
  Weight: 57 kg

DRUGS (6)
  1. GEMZAR [Suspect]
     Active Substance: GEMCITABINE HYDROCHLORIDE
     Indication: MALIGNANT NEOPLASM OF PLEURA
     Dosage: 1600 MG, CYCLICAL
     Route: 041
     Dates: start: 20200407, end: 20200414
  2. AMLODIPINE [Concomitant]
     Active Substance: AMLODIPINE BESYLATE
     Dosage: 5 MG
     Route: 048
  3. MAGMITT [Concomitant]
     Active Substance: MAGNESIUM OXIDE
     Dosage: 330 MG
     Route: 048
  4. GRANISETRON [Concomitant]
     Active Substance: GRANISETRON
     Route: 041
  5. DEXART [Concomitant]
     Active Substance: DEXAMETHASONE SODIUM PHOSPHATE
     Route: 041
  6. VALSARTAN. [Concomitant]
     Active Substance: VALSARTAN
     Dosage: 80 MG
     Route: 048

REACTIONS (4)
  - C-reactive protein increased [Recovering/Resolving]
  - Off label use [Unknown]
  - Lung opacity [Unknown]
  - Interstitial lung disease [Recovering/Resolving]

NARRATIVE: CASE EVENT DATE: 20200430
